FAERS Safety Report 22066564 (Version 1)
Quarter: 2023Q1

REPORT INFORMATION
  Report Type: Other
  Country: None (occurrence: US)
  Receive Date: 20230306
  Receipt Date: 20230306
  Transmission Date: 20230418
  Serious: Yes (Hospitalization)
  Sender: FDA-Public Use
  Company Number: US-B.Braun Medical Inc.-2138730

PATIENT
  Age: 37 Year
  Sex: Female

DRUGS (2)
  1. DEXTROSE [Suspect]
     Active Substance: DEXTROSE
     Indication: Hypoglycaemia
     Route: 042
  2. DIAZOXIDE [Suspect]
     Active Substance: DIAZOXIDE

REACTIONS (1)
  - Drug ineffective [Unknown]
